FAERS Safety Report 13463584 (Version 6)
Quarter: 2018Q2

REPORT INFORMATION
  Report Type: Report from Study
  Country: US (occurrence: US)
  Receive Date: 20170420
  Receipt Date: 20180418
  Transmission Date: 20180711
  Serious: Yes (Other)
  Sender: FDA-Public Use
  Company Number: US-ACTELION-A-US2017-152465

PATIENT
  Age: 51 Year
  Sex: Female
  Weight: 81.63 kg

DRUGS (7)
  1. UPTRAVI [Suspect]
     Active Substance: SELEXIPAG
     Indication: PULMONARY ARTERIAL HYPERTENSION
     Dosage: UNK
     Route: 048
  2. ELIQUIS [Concomitant]
     Active Substance: APIXABAN
  3. UPTRAVI [Suspect]
     Active Substance: SELEXIPAG
     Dosage: 1000 MCG, BID
     Route: 048
  4. ADCIRCA [Concomitant]
     Active Substance: TADALAFIL
  5. UPTRAVI [Suspect]
     Active Substance: SELEXIPAG
     Dosage: 400 MCG, UNK
     Route: 048
  6. UPTRAVI [Suspect]
     Active Substance: SELEXIPAG
     Dosage: 1200 MCG, BID
     Route: 048
  7. TRACLEER [Suspect]
     Active Substance: BOSENTAN
     Indication: PULMONARY ARTERIAL HYPERTENSION
     Dosage: 125 MG, BID
     Route: 048

REACTIONS (17)
  - Atrial fibrillation [Unknown]
  - Nausea [Unknown]
  - Faeces soft [Unknown]
  - Flatulence [Unknown]
  - Hyperhidrosis [Unknown]
  - Malaise [Unknown]
  - Abdominal discomfort [Unknown]
  - Pulmonary arterial pressure abnormal [Unknown]
  - Diarrhoea [Unknown]
  - Dizziness [Unknown]
  - Frequent bowel movements [Unknown]
  - Fluid retention [Unknown]
  - Low carbohydrate diet [Unknown]
  - Arthralgia [Unknown]
  - Pain in extremity [Unknown]
  - Headache [Unknown]
  - Presyncope [Unknown]

NARRATIVE: CASE EVENT DATE: 20170412
